FAERS Safety Report 18351839 (Version 1)
Quarter: 2020Q4

REPORT INFORMATION
  Report Type: Spontaneous
  Country: US (occurrence: US)
  Receive Date: 20201007
  Receipt Date: 20201007
  Transmission Date: 20210114
  Serious: Yes (Death, Other)
  Sender: FDA-Public Use
  Company Number: US-CADILA HEALTHCARE LIMITED-US-ZYDUS-056450

PATIENT

DRUGS (4)
  1. CLONAZEPAM. [Concomitant]
     Active Substance: CLONAZEPAM
     Indication: SCHIZOPHRENIA
     Dosage: UNK
  2. RANOLAZINE. [Suspect]
     Active Substance: RANOLAZINE
     Indication: SUICIDE ATTEMPT
     Dosage: 30 GRAM
     Route: 065
  3. ATORVASTATIN [Concomitant]
     Active Substance: ATORVASTATIN
     Indication: CORONARY ARTERY DISEASE
     Dosage: UNK
  4. CLOPIDOGREL [Concomitant]
     Active Substance: CLOPIDOGREL BISULFATE
     Indication: CORONARY ARTERY DISEASE
     Dosage: UNK

REACTIONS (10)
  - Pulseless electrical activity [Fatal]
  - Confusional state [Unknown]
  - Seizure [Recovered/Resolved]
  - Mental status changes [Unknown]
  - Atrioventricular block [Unknown]
  - Suicide attempt [Unknown]
  - Vomiting [Unknown]
  - Overdose [Fatal]
  - Ventricular tachycardia [Fatal]
  - Cardiac arrest [Unknown]
